FAERS Safety Report 6253572-9 (Version None)
Quarter: 2009Q3

REPORT INFORMATION
  Report Type: 
  Country: None (occurrence: None)
  Receive Date: 20090701
  Receipt Date: 20090624
  Transmission Date: 20100115
  Serious: Yes (Hospitalization)
  Sender: FDA-Public Use
  Company Number: DE-ABBOTT-09P-062-0581916-00

PATIENT
  Sex: Female

DRUGS (2)
  1. HUMIRA [Suspect]
     Indication: CROHN'S DISEASE
     Route: 058
     Dates: start: 20080201
  2. ANTIHYPERTENSIVE MEDICATION (NOT SPECIFIED) [Concomitant]
     Indication: HYPERTENSION

REACTIONS (2)
  - CHOLECYSTITIS [None]
  - CHOLELITHOTOMY [None]
